FAERS Safety Report 9016668 (Version 2)
Quarter: 2013Q4

REPORT INFORMATION
  Report Type: Spontaneous
  Country: JP (occurrence: JP)
  Receive Date: 20130117
  Receipt Date: 20131007
  Transmission Date: 20140711
  Serious: Yes (Death, Life-Threatening, Other)
  Sender: FDA-Public Use
  Company Number: JP-009507513-2011SP018197

PATIENT
  Age: 56 Year
  Sex: Female
  Weight: 69 kg

DRUGS (13)
  1. BRIDION [Suspect]
     Indication: NEUROMUSCULAR BLOCKADE REVERSAL
     Dosage: 200 MG, ONCE
     Route: 042
     Dates: start: 20110421, end: 20110421
  2. IOMEPROL [Suspect]
     Indication: ARTERIOGRAM CORONARY
     Dosage: UNK
     Dates: start: 20110422
  3. DORMICUM (MIDAZOLAM) [Concomitant]
     Indication: PREMEDICATION
     Dosage: 2 MG, UNK, DEVIDED DOSE
     Route: 030
     Dates: start: 20110421, end: 20110421
  4. GASTER (FAMOTIDINE) [Concomitant]
     Indication: PREMEDICATION
     Dosage: 20 MG, UNKNOWN
     Route: 041
     Dates: start: 20110421, end: 20110421
  5. FENTANYL CITRATE [Concomitant]
     Indication: ANALGESIC THERAPY
     Dosage: 50 ?G, QD
     Route: 042
     Dates: start: 20110421, end: 20110421
  6. FENTANYL CITRATE [Concomitant]
     Indication: ANALGESIC THERAPY
     Dosage: 12 IU, UNK
     Route: 008
     Dates: start: 20110421, end: 20110421
  7. CRIXOFOL [Concomitant]
     Indication: INDUCTION OF ANAESTHESIA
     Dosage: 120 MG, UNK
     Route: 042
     Dates: start: 20110421, end: 20110421
  8. ESLAX [Concomitant]
     Indication: NEUROMUSCULAR BLOCKING THERAPY
     Dosage: 50 MG, ONCE
     Route: 042
     Dates: start: 20110421, end: 20110421
  9. ANAPEINE [Concomitant]
     Indication: ANALGESIC THERAPY
     Dosage: 276 ML, UNK
     Route: 008
     Dates: start: 20110421, end: 20110421
  10. ANAPEINE [Concomitant]
     Indication: ANALGESIC THERAPY
     Dosage: 5 ML, UNK
     Route: 008
     Dates: start: 20110421, end: 20110421
  11. ROPION [Concomitant]
     Indication: ANALGESIC THERAPY
     Dosage: 50 MG, UNK
     Route: 042
     Dates: start: 20110421, end: 20110421
  12. NEO-SYNESIN [Concomitant]
     Indication: BLOOD PRESSURE DECREASED
     Dosage: 0.05 MCG/KG/H
     Route: 041
     Dates: start: 20110421, end: 20110421
  13. INDIGOCARMINE [Concomitant]
     Indication: ENDOSCOPY
     Dosage: 20 MG, QD
     Route: 042
     Dates: start: 20110421, end: 20110421

REACTIONS (10)
  - Multi-organ failure [Fatal]
  - Cerebral ischaemia [Fatal]
  - Intra-abdominal haemorrhage [Recovered/Resolved]
  - Arteriospasm coronary [Recovering/Resolving]
  - Renal failure acute [Not Recovered/Not Resolved]
  - Disseminated intravascular coagulation [Fatal]
  - Anaphylactic shock [Recovering/Resolving]
  - Blood pressure decreased [Recovering/Resolving]
  - Bradycardia [Recovering/Resolving]
  - Cardiac arrest [Recovered/Resolved]
